FAERS Safety Report 16471897 (Version 1)
Quarter: 2019Q2

REPORT INFORMATION
  Report Type: Spontaneous
  Country: US (occurrence: US)
  Receive Date: 20190625
  Receipt Date: 20190625
  Transmission Date: 20190711
  Serious: Yes (Hospitalization)
  Sender: FDA-Public Use
  Company Number: US-SUN PHARMACEUTICAL INDUSTRIES LTD-2019R1-201465

PATIENT
  Age: 74 Year
  Sex: Male

DRUGS (6)
  1. PREGABALIN. [Suspect]
     Active Substance: PREGABALIN
     Dosage: 150 MILLIGRAM(12 HOURS)
     Route: 065
  2. PREGABALIN. [Suspect]
     Active Substance: PREGABALIN
     Dosage: 50  WITH LUNCH
     Route: 065
  3. PREGABALIN. [Suspect]
     Active Substance: PREGABALIN
     Indication: PAIN
     Dosage: 100 MILLIGRAM EVERY 12 HOURS
     Route: 065
  4. KADIAN [Suspect]
     Active Substance: MORPHINE SULFATE
     Indication: PAIN
     Dosage: 100 MILLIGRAM  EVERY 8 HOURS
     Route: 048
  5. DICLOFENAC [Suspect]
     Active Substance: DICLOFENAC
     Indication: PAIN
     Dosage: AS NEEDED
     Route: 061
  6. MORPHINE [Suspect]
     Active Substance: MORPHINE
     Indication: PAIN
     Dosage: 30 MILLIGRAM, IMMEDIATE RELEASE (EVERY 8 HOURS)
     Route: 048

REACTIONS (6)
  - Drug tolerance [Unknown]
  - Drug withdrawal syndrome [Recovered/Resolved]
  - Pain [Recovering/Resolving]
  - Tremor [Recovered/Resolved]
  - Diarrhoea [Recovered/Resolved]
  - Nausea [Recovered/Resolved]
